FAERS Safety Report 8651679 (Version 2)
Quarter: 2012Q4

REPORT INFORMATION
  Report Type: Report from Study
  Country: CA (occurrence: CA)
  Receive Date: 20120706
  Receipt Date: 20120924
  Transmission Date: 20130627
  Serious: Yes (Hospitalization)
  Sender: FDA-Public Use
  Company Number: CA-JNJFOC-20120613778

PATIENT
  Age: 14 None
  Sex: Male
  Weight: 88 kg

DRUGS (1)
  1. REMICADE [Suspect]
     Indication: CROHN^S DISEASE
     Dosage: Total infusions till date was 12
     Route: 042
     Dates: start: 201103

REACTIONS (4)
  - Hospitalisation [Unknown]
  - Crohn^s disease [Recovering/Resolving]
  - Conjunctivitis [Unknown]
  - Lacrimation increased [Unknown]
